FAERS Safety Report 7908554-5 (Version None)
Quarter: 2011Q4

REPORT INFORMATION
  Report Type: 
  Country: None (occurrence: None)
  Receive Date: 20111111
  Receipt Date: 20111107
  Transmission Date: 20120403
  Serious: Yes (Other)
  Sender: FDA-Public Use
  Company Number: GB-PFIZER INC-2011217066

PATIENT
  Sex: Male

DRUGS (2)
  1. PARACETAMOL [Concomitant]
  2. LIPITOR [Suspect]
     Dosage: 80 MG, 1X/DAY

REACTIONS (2)
  - CHOKING [None]
  - PRODUCT SIZE ISSUE [None]
